FAERS Safety Report 9554458 (Version 1)
Quarter: 2013Q3

REPORT INFORMATION
  Report Type: Spontaneous
  Country: ES (occurrence: ES)
  Receive Date: 20130925
  Receipt Date: 20130925
  Transmission Date: 20140515
  Serious: Yes (Hospitalization)
  Sender: FDA-Public Use
  Company Number: ES-B.I. PHARMACEUTICALS,INC./RIDGEFIELD-2013-BI-29767BY

PATIENT
  Age: 69 Year
  Sex: Male
  Weight: 100 kg

DRUGS (4)
  1. PRITOR PLUS [Suspect]
     Indication: HYPERTENSION
     Route: 048
     Dates: start: 20031219
  2. BILASTINE [Suspect]
     Indication: PRODUCT USED FOR UNKNOWN INDICATION
     Dosage: 20 MG
     Route: 048
     Dates: start: 20130509
  3. SOMAVERT [Suspect]
     Indication: CONJUNCTIVITIS BACTERIAL
     Dosage: 15 MG
     Route: 058
     Dates: start: 20130506, end: 20130507
  4. LERCANIDIPINE [Suspect]
     Indication: PRODUCT USED FOR UNKNOWN INDICATION
     Dosage: 10 MG
     Route: 048
     Dates: start: 20060407

REACTIONS (3)
  - Extrasystoles [Unknown]
  - Tachycardia [Unknown]
  - Extrasystoles [Unknown]
